FAERS Safety Report 8051809-7 (Version None)
Quarter: 2012Q1

REPORT INFORMATION
  Report Type: 
  Country: None (occurrence: None)
  Receive Date: 20120118
  Receipt Date: 20120111
  Transmission Date: 20120608
  Serious: Yes (Death, Other)
  Sender: FDA-Public Use
  Company Number: US-BRISTOL-MYERS SQUIBB COMPANY-16317505

PATIENT
  Age: 47 Year
  Sex: Female

DRUGS (5)
  1. SILDENAFIL [Suspect]
     Route: 065
  2. ACETAMINOPHEN [Suspect]
     Dosage: 1DF=100MCG/ML.
     Route: 065
  3. ETHANOL [Suspect]
  4. QUINAPRIL HCL [Suspect]
     Route: 065
  5. NADOLOL [Suspect]
     Route: 065

REACTIONS (1)
  - COMPLETED SUICIDE [None]
